FAERS Safety Report 16928031 (Version 1)
Quarter: 2019Q4

REPORT INFORMATION
  Report Type: Report from Study
  Country: US (occurrence: US)
  Receive Date: 20191017
  Receipt Date: 20191017
  Transmission Date: 20200122
  Serious: Yes (Hospitalization, Other)
  Sender: FDA-Public Use
  Company Number: US-ROCHE-2436145

PATIENT
  Age: 54 Year
  Sex: Female
  Weight: 68.55 kg

DRUGS (17)
  1. METOCLOPRAMIDE HYDROCHLORIDE. [Concomitant]
     Active Substance: METOCLOPRAMIDE HYDROCHLORIDE
     Dosage: EVERY NIGHT
     Route: 065
  2. LACTULOSE. [Concomitant]
     Active Substance: LACTULOSE
     Dosage: 10GM/15 ML AS NEEDED
     Route: 065
  3. MIRTAZAPINE. [Concomitant]
     Active Substance: MIRTAZAPINE
     Dosage: EVERY NIGHT
     Route: 065
  4. FETZIMA [Concomitant]
     Active Substance: LEVOMILNACIPRAN HYDROCHLORIDE
     Dosage: EVERY BEDTIME
     Route: 065
  5. TOPAMAX [Concomitant]
     Active Substance: TOPIRAMATE
     Route: 065
  6. OCREVUS [Suspect]
     Active Substance: OCRELIZUMAB
     Indication: PRIMARY PROGRESSIVE MULTIPLE SCLEROSIS
     Dosage: 01/MAY/2018, 01/NOV/2018, 18/NOV/2018, 06/MAY/2019
     Route: 065
  7. PLAVIX [Concomitant]
     Active Substance: CLOPIDOGREL BISULFATE
     Route: 065
  8. EXCEDRIN [Concomitant]
     Active Substance: ACETAMINOPHEN\ASPIRIN\CAFFEINE
     Indication: PAIN
     Route: 065
  9. ASPIRIN [ACETYLSALICYLIC ACID] [Concomitant]
     Active Substance: ASPIRIN
     Route: 065
  10. LITHIUM. [Concomitant]
     Active Substance: LITHIUM
     Route: 065
  11. CLONAZEPAM. [Concomitant]
     Active Substance: CLONAZEPAM
     Route: 065
  12. LAMOTRIGINE. [Concomitant]
     Active Substance: LAMOTRIGINE
     Route: 065
  13. IMIPRAMINE [Concomitant]
     Active Substance: IMIPRAMINE
  14. MAGNESIUM [Concomitant]
     Active Substance: MAGNESIUM
  15. ZOFRAN [Concomitant]
     Active Substance: ONDANSETRON HYDROCHLORIDE
     Route: 065
  16. ACETAMINOPHEN. [Concomitant]
     Active Substance: ACETAMINOPHEN
  17. BISOPROLOL FUMARATE. [Concomitant]
     Active Substance: BISOPROLOL FUMARATE
     Dosage: EVERY NIGHT
     Route: 065

REACTIONS (8)
  - Gait disturbance [Not Recovered/Not Resolved]
  - Pneumonia [Recovered/Resolved]
  - Sepsis [Recovered/Resolved]
  - Arthropathy [Not Recovered/Not Resolved]
  - Muscular weakness [Recovered/Resolved]
  - Tremor [Recovered/Resolved]
  - Ammonia increased [Recovered/Resolved]
  - Fall [Unknown]

NARRATIVE: CASE EVENT DATE: 201801
